FAERS Safety Report 5951275-9 (Version None)
Quarter: 2008Q4

REPORT INFORMATION
  Report Type: 
  Country: None (occurrence: None)
  Receive Date: 20081112
  Receipt Date: 20081112
  Transmission Date: 20090506
  Serious: No
  Sender: FDA-Public Use
  Company Number: None

PATIENT
  Sex: Male
  Weight: 125.6 kg

DRUGS (1)
  1. PROMUS DRUG ELUTING STENT [Suspect]

REACTIONS (3)
  - PROCEDURAL COMPLICATION [None]
  - STENT EMBOLISATION [None]
  - TREATMENT FAILURE [None]
